FAERS Safety Report 8905483 (Version 1)
Quarter: 2012Q4

REPORT INFORMATION
  Report Type: 
  Country: CA (occurrence: CA)
  Receive Date: 20121109
  Receipt Date: 20121109
  Transmission Date: 20130627
  Serious: Yes (Life-Threatening, Hospitalization, Disabling, Other)
  Sender: FDA-Public Use
  Company Number: PHHY2012CA102025

PATIENT
  Age: 51 Year
  Sex: Female

DRUGS (14)
  1. GILENYA [Suspect]
     Indication: RELAPSING-REMITTING MULTIPLE SCLEROSIS
     Dosage: 0.5 mg
     Route: 048
     Dates: start: 20111220, end: 20120129
  2. DITROPAN [Concomitant]
     Dosage: UNK UKN, UNK
  3. IRBESARTAN [Concomitant]
     Dosage: UNK UKN, UNK
  4. CELEBREX [Concomitant]
     Dosage: UNK UKN, UNK
  5. SYNTHROID [Concomitant]
     Dosage: UNK UKN, UNK
  6. VITAMIN D [Concomitant]
     Dosage: UNK UKN, UNK
  7. STEROIDS NOS [Concomitant]
     Dosage: UNK UKN, UNK
  8. DILAUDID [Concomitant]
     Dosage: UNK UKN, UNK
  9. HYDROMORPHONE [Concomitant]
     Dosage: UNK UKN, UNK
  10. FOSAMAX [Concomitant]
     Dosage: UNK UKN, UNK
  11. BIOCAL D FORTE [Concomitant]
     Dosage: UNK UKN, UNK
  12. OXYBUTYNIN [Concomitant]
     Dosage: UNK UKN, UNK
  13. ALENDRONATE SODIUM [Concomitant]
     Dosage: UNK UKN, UNK
  14. CALCIUM [Concomitant]
     Dosage: UNK UKN, UNK

REACTIONS (8)
  - Grand mal convulsion [Recovering/Resolving]
  - Muscle rigidity [Recovering/Resolving]
  - Loss of consciousness [Recovering/Resolving]
  - Hemiparesis [Recovering/Resolving]
  - Central nervous system lesion [Recovering/Resolving]
  - CSF protein increased [Recovering/Resolving]
  - Blood magnesium decreased [Recovering/Resolving]
  - Hepatic enzyme increased [Recovering/Resolving]
